FAERS Safety Report 25235904 (Version 2)
Quarter: 2025Q2

REPORT INFORMATION
  Report Type: Spontaneous
  Country: JP (occurrence: JP)
  Receive Date: 20250424
  Receipt Date: 20250610
  Transmission Date: 20250717
  Serious: Yes (Life-Threatening, Hospitalization, Other)
  Sender: BRISTOL-MYERS SQUIBB COMPANY
  Company Number: JP-ONO-2024JP023621

PATIENT
  Age: 67 Year
  Sex: Male
  Weight: 58.8 kg

DRUGS (6)
  1. OPDIVO [Suspect]
     Active Substance: NIVOLUMAB
     Indication: Oesophageal carcinoma
     Route: 041
     Dates: start: 20231030, end: 20240422
  2. DOCETAXEL [Concomitant]
     Active Substance: DOCETAXEL
     Indication: Oesophageal carcinoma
     Dates: start: 20240520, end: 20240722
  3. HERBALS [Concomitant]
     Active Substance: HERBALS
     Indication: Product used for unknown indication
     Dosage: 2.5 G, Q12H
     Route: 048
     Dates: start: 20241001, end: 20241106
  4. VONOPRAZAN FUMARATE [Concomitant]
     Active Substance: VONOPRAZAN FUMARATE
     Indication: Product used for unknown indication
     Dosage: 10 MG, EVERYDAY
     Route: 048
     Dates: start: 20210607, end: 20241106
  5. PRIMPERAN [Concomitant]
     Active Substance: METOCLOPRAMIDE HYDROCHLORIDE
     Indication: Product used for unknown indication
     Dosage: 5 MG, Q8H
     Route: 048
     Dates: end: 20241106
  6. LAGNOS NF [Concomitant]
     Indication: Product used for unknown indication
     Dosage: 12 G, EVERYDAY
     Route: 048
     Dates: end: 20241106

REACTIONS (4)
  - Secondary adrenocortical insufficiency [Recovered/Resolved]
  - Hepatic function abnormal [Recovering/Resolving]
  - SARS-CoV-2 test positive [Recovered/Resolved]
  - Malignant neoplasm progression [Unknown]

NARRATIVE: CASE EVENT DATE: 20240520
